FAERS Safety Report 16758279 (Version 1)
Quarter: 2019Q3

REPORT INFORMATION
  Report Type: Spontaneous
  Country: FR (occurrence: FR)
  Receive Date: 20190830
  Receipt Date: 20190830
  Transmission Date: 20191005
  Serious: Yes (Death, Other)
  Sender: FDA-Public Use
  Company Number: FR-TEVA-2019-FR-1097776

PATIENT
  Age: 74 Year
  Sex: Male
  Weight: 97 kg

DRUGS (6)
  1. BACTRIM [Suspect]
     Active Substance: SULFAMETHOXAZOLE\TRIMETHOPRIM
     Indication: RESPIRATORY TRACT INFECTION
     Route: 042
     Dates: start: 20190706, end: 20190709
  2. ROVAMYCINE [Suspect]
     Active Substance: SPIRAMYCIN
     Indication: RESPIRATORY TRACT INFECTION
     Route: 042
     Dates: start: 20190707, end: 20190712
  3. CEFOTAXIME BASE [Suspect]
     Active Substance: CEFOTAXIME SODIUM
     Indication: RESPIRATORY TRACT INFECTION
     Route: 042
     Dates: start: 20190707, end: 20190712
  4. ESOMEPRAZOLE. [Suspect]
     Active Substance: ESOMEPRAZOLE MAGNESIUM
     Indication: GASTROOESOPHAGEAL REFLUX DISEASE
     Route: 048
     Dates: start: 20190706, end: 20190712
  5. NOXAFIL [Suspect]
     Active Substance: POSACONAZOLE
     Indication: RESPIRATORY TRACT INFECTION
     Route: 042
     Dates: start: 20190707, end: 20190710
  6. AMBISOME [Suspect]
     Active Substance: AMPHOTERICIN B
     Indication: RESPIRATORY TRACT INFECTION
     Route: 042
     Dates: start: 20190706, end: 20190709

REACTIONS (1)
  - Acute kidney injury [Not Recovered/Not Resolved]

NARRATIVE: CASE EVENT DATE: 20190708
